FAERS Safety Report 22341392 (Version 1)
Quarter: 2023Q2

REPORT INFORMATION
  Report Type: Spontaneous
  Country: BE (occurrence: BE)
  Receive Date: 20230518
  Receipt Date: 20230518
  Transmission Date: 20230722
  Serious: Yes (Other)
  Sender: FDA-Public Use
  Company Number: None

PATIENT
  Age: 39 Year
  Sex: Female

DRUGS (3)
  1. ETHINYL ESTRADIOL\MEDROXYPROGESTERONE ACETATE [Suspect]
     Active Substance: ETHINYL ESTRADIOL\MEDROXYPROGESTERONE ACETATE
  2. NOMEGESTROL ACETATE [Suspect]
     Active Substance: NOMEGESTROL ACETATE
  3. LEVONORGESTREL [Suspect]
     Active Substance: LEVONORGESTREL

REACTIONS (1)
  - Meningioma [Unknown]

NARRATIVE: CASE EVENT DATE: 20200101
